FAERS Safety Report 5984854-3 (Version None)
Quarter: 2008Q4

REPORT INFORMATION
  Report Type: 
  Country: None (occurrence: None)
  Receive Date: 20081202
  Receipt Date: 20081118
  Transmission Date: 20090506
  Serious: Yes (Death, Hospitalization)
  Sender: FDA-Public Use
  Company Number: 004858

PATIENT
  Age: 82 Year
  Sex: Female
  Weight: 46.7 kg

DRUGS (5)
  1. PLETAL [Suspect]
     Indication: ARTERIOSCLEROSIS OBLITERANS
  2. LOSARTAN POTASSIUM [Suspect]
     Indication: HYPERTENSION
     Dosage: 25 MG, DAILY DOSE
     Route: 048
     Dates: start: 20060530, end: 20080323
  3. HI-Z (GAMMA ORYZANOL) [Concomitant]
  4. DOGMATYL (SULPIRIDE) [Interacting]
  5. FAMOTIDINE [Concomitant]

REACTIONS (12)
  - ABSCESS [None]
  - ARTERIOSCLEROSIS OBLITERANS [None]
  - ASTHMA [None]
  - ATRIAL FIBRILLATION [None]
  - BUNDLE BRANCH BLOCK [None]
  - CARDIAC FAILURE CONGESTIVE [None]
  - INFECTION [None]
  - LUNG INFECTION PSEUDOMONAL [None]
  - MITRAL VALVE INCOMPETENCE [None]
  - MYOCARDIAL INFARCTION [None]
  - ONYCHOMYCOSIS [None]
  - TACHYCARDIA PAROXYSMAL [None]
